FAERS Safety Report 23422603 (Version 1)
Quarter: 2024Q1

REPORT INFORMATION
  Report Type: Spontaneous
  Country: CA (occurrence: CA)
  Receive Date: 20240119
  Receipt Date: 20240119
  Transmission Date: 20240410
  Serious: Yes (Other)
  Sender: FDA-Public Use
  Company Number: CA-FreseniusKabi-FK202400828

PATIENT
  Sex: Male

DRUGS (2)
  1. MIDAZOLAM HYDROCHLORIDE [Suspect]
     Active Substance: MIDAZOLAM HYDROCHLORIDE
     Indication: Sedative therapy
     Dosage: ROUTE: INTRAVENOUS (NOT OTHERWISE SPECIFIED)?FORM: SOLUTION INTRAMUSCULAR?FREQUNECY: ONCE
     Route: 042
  2. FENTANYL [Suspect]
     Active Substance: FENTANYL\FENTANYL CITRATE
     Indication: Sedative therapy
     Dosage: ROUTE: INTRAVENOUS (NOT OTHERWISE SPECIFIED)?FORM: NOT SPECIFIED?FREQUNECY: ONCE
     Route: 042

REACTIONS (4)
  - Blood pressure decreased [Unknown]
  - Depressed level of consciousness [Unknown]
  - Oxygen saturation decreased [Unknown]
  - Reversal of sedation [Unknown]
